FAERS Safety Report 15266708 (Version 1)
Quarter: 2018Q3

REPORT INFORMATION
  Report Type: Spontaneous
  Country: US (occurrence: US)
  Receive Date: 20180810
  Receipt Date: 20180810
  Transmission Date: 20181010
  Serious: Yes (Other)
  Sender: FDA-Public Use
  Company Number: US-JNJFOC-20180801022

PATIENT
  Sex: Female

DRUGS (3)
  1. CLONIDINE. [Concomitant]
     Active Substance: CLONIDINE
     Indication: PRODUCT USED FOR UNKNOWN INDICATION
     Route: 065
  2. TYLENOL REGULAR STRENGTH [Suspect]
     Active Substance: ACETAMINOPHEN
     Indication: EYE PAIN
     Dosage: ABOUT 6?8 TABLETS PER DAY
     Route: 048
  3. TYLENOL EXTRA STRENGTH [Suspect]
     Active Substance: ACETAMINOPHEN
     Indication: EYE PAIN
     Dosage: ABOUT 6?8 TABLETS PER DAY
     Route: 048

REACTIONS (5)
  - Off label use [Unknown]
  - Overdose [Unknown]
  - Drug dependence [Not Recovered/Not Resolved]
  - Product use in unapproved indication [Unknown]
  - Drug administration error [Unknown]
